FAERS Safety Report 15826313 (Version 2)
Quarter: 2019Q1

REPORT INFORMATION
  Report Type: Spontaneous
  Country: US (occurrence: US)
  Receive Date: 20190115
  Receipt Date: 20190214
  Transmission Date: 20190417
  Serious: Yes (Hospitalization)
  Sender: FDA-Public Use
  Company Number: US-009507513-1901USA004542

PATIENT
  Age: 72 Year
  Sex: Female
  Weight: 87.2 kg

DRUGS (10)
  1. AUGMENTIN [Suspect]
     Active Substance: AMOXICILLIN\CLAVULANATE POTASSIUM
     Indication: UPPER RESPIRATORY TRACT INFECTION
  2. PREVNAR 13 [Concomitant]
     Active Substance: PNEUMOCOCCAL 13-VALENT CONJUGATE VACCINE
     Dosage: UNK
     Dates: start: 20181227
  3. FLUOXETINE [Concomitant]
     Active Substance: FLUOXETINE HYDROCHLORIDE
     Indication: DEPRESSION
     Dosage: 40 MG, DAILY DOSE
     Route: 048
  4. LEVOTHYROXINE SODIUM. [Concomitant]
     Active Substance: LEVOTHYROXINE SODIUM
     Indication: HYPOTHYROIDISM
     Dosage: 75 MG, DAILY DOSE
     Route: 048
  5. AUTOLOGOUS DENDRITIC CELL VACCINE (NDV INFECTED TUMOR CELLS) [Suspect]
     Active Substance: INVESTIGATIONAL PRODUCT
     Dosage: DOSAGE:63X10^6 DENDRITIC CELLS,FREQUENCY: Q3W X3
     Route: 036
     Dates: start: 20190102
  6. AUTOLOGOUS DENDRITIC CELL VACCINE (NDV INFECTED TUMOR CELLS) [Suspect]
     Active Substance: INVESTIGATIONAL PRODUCT
     Dosage: DOSAGE:63X10^6 DENDRITIC CELLS,FREQUENCY: Q3W X3
     Route: 036
     Dates: start: 20190109
  7. KEYTRUDA [Suspect]
     Active Substance: PEMBROLIZUMAB
     Indication: B-CELL LYMPHOMA
     Dosage: 200 MILLIGRAM, Q3W
     Route: 042
     Dates: start: 20181130, end: 20181226
  8. KEYTRUDA [Suspect]
     Active Substance: PEMBROLIZUMAB
     Dosage: UNK
     Route: 042
     Dates: start: 20190109, end: 20190116
  9. AUTOLOGOUS DENDRITIC CELL VACCINE (NDV INFECTED TUMOR CELLS) [Suspect]
     Active Substance: INVESTIGATIONAL PRODUCT
     Indication: PROPHYLAXIS
     Dosage: DOSAGE:63X10^6 DENDRITIC CELLS,FREQUENCY: Q3W X3
     Route: 036
     Dates: start: 20181227
  10. AUGMENTIN [Suspect]
     Active Substance: AMOXICILLIN\CLAVULANATE POTASSIUM
     Indication: COUGH
     Dosage: UNK
     Dates: start: 20190101, end: 20190104

REACTIONS (5)
  - Pruritus [Recovering/Resolving]
  - Product use in unapproved indication [Unknown]
  - Rash maculo-papular [Recovering/Resolving]
  - Pyrexia [Unknown]
  - Skin plaque [Recovering/Resolving]

NARRATIVE: CASE EVENT DATE: 20181130
